FAERS Safety Report 13255208 (Version 1)
Quarter: 2017Q1

REPORT INFORMATION
  Report Type: Spontaneous
  Country: US (occurrence: US)
  Receive Date: 20170221
  Receipt Date: 20170221
  Transmission Date: 20170428
  Serious: Yes (Hospitalization)
  Sender: FDA-Public Use
  Company Number: US-JNJFOC-20161202248

PATIENT
  Age: 32 Year
  Sex: Female
  Weight: 101.15 kg

DRUGS (3)
  1. INVEGA SUSTENNA [Suspect]
     Active Substance: PALIPERIDONE PALMITATE
     Indication: SCHIZOPHRENIA
     Dosage: GLUTEALLY
     Route: 030
  2. INVEGA TRINZA [Suspect]
     Active Substance: PALIPERIDONE PALMITATE
     Indication: SCHIZOPHRENIA
     Dosage: GLUTEALLY
     Route: 030
  3. DOXEPIN [Concomitant]
     Active Substance: DOXEPIN
     Indication: HYPERSOMNIA
     Route: 065

REACTIONS (3)
  - Schizophrenia [Unknown]
  - Inappropriate schedule of drug administration [Unknown]
  - Off label use [Unknown]
